FAERS Safety Report 14474306 (Version 2)
Quarter: 2018Q1

REPORT INFORMATION
  Report Type: Spontaneous
  Country: NO (occurrence: NO)
  Receive Date: 20180201
  Receipt Date: 20180209
  Transmission Date: 20180509
  Serious: Yes (Death, Life-Threatening, Hospitalization)
  Sender: FDA-Public Use
  Company Number: NO-ELI_LILLY_AND_COMPANY-NO201801013196

PATIENT
  Age: 70 Year
  Sex: Male
  Weight: 42 kg

DRUGS (2)
  1. GEMCITABINE HYDROCHLORIDE. [Suspect]
     Active Substance: GEMCITABINE HYDROCHLORIDE
     Indication: INFECTION
     Dosage: 1400 MG, CYCLICAL
     Route: 042
     Dates: start: 20171031
  2. CARBOPLATIN. [Suspect]
     Active Substance: CARBOPLATIN
     Indication: INFECTION
     Dosage: 350 MG, CYCLICAL
     Route: 042
     Dates: start: 20171031

REACTIONS (2)
  - Septic shock [Fatal]
  - Off label use [Recovered/Resolved]

NARRATIVE: CASE EVENT DATE: 20171031
